FAERS Safety Report 10082400 (Version 1)
Quarter: 2014Q2

REPORT INFORMATION
  Report Type: Spontaneous
  Country: US (occurrence: None)
  Receive Date: 20140410
  Receipt Date: 20140410
  Transmission Date: 20141212
  Serious: Yes (Hospitalization)
  Sender: FDA-Public Use
  Company Number: BR14-085-AE

PATIENT
  Age: 64 Year
  Sex: Female
  Weight: 68.04 kg

DRUGS (1)
  1. SPIRONOLACTONE [Suspect]
     Indication: HYPOKALAEMIA
     Route: 048
     Dates: start: 201312, end: 201402

REACTIONS (7)
  - Malaise [None]
  - Convulsion [None]
  - Chest pain [None]
  - Back pain [None]
  - Breast swelling [None]
  - Swelling [None]
  - Gastric disorder [None]
